FAERS Safety Report 9070071 (Version 1)
Quarter: 2013Q1

REPORT INFORMATION
  Report Type: Report from Study
  Country: US (occurrence: US)
  Receive Date: 20130129
  Receipt Date: 20130129
  Transmission Date: 20140127
  Serious: No
  Sender: FDA-Public Use
  Company Number: US-ABBOTT-12P-163-0924863-00

PATIENT
  Age: 29 Year
  Sex: Female

DRUGS (2)
  1. HUMIRA 40 MG/0.8 ML PEN [Suspect]
     Indication: CROHN^S DISEASE
     Dates: start: 20120326, end: 20120326
  2. HUMIRA 40 MG/0.8 ML PEN [Suspect]
     Dates: start: 20120409

REACTIONS (5)
  - Fatigue [Unknown]
  - Insomnia [Not Recovered/Not Resolved]
  - Local swelling [Unknown]
  - Weight increased [Unknown]
  - Abdominal distension [Recovering/Resolving]
